FAERS Safety Report 12293178 (Version 2)
Quarter: 2018Q4

REPORT INFORMATION
  Report Type: Report from Study
  Country: US (occurrence: US)
  Receive Date: 20160421
  Receipt Date: 20181206
  Transmission Date: 20190204
  Serious: Yes (Other)
  Sender: FDA-Public Use
  Company Number: US-AMGEN-USASL2016031443

PATIENT
  Age: 60 Year
  Sex: Female

DRUGS (2)
  1. REPATHA [Suspect]
     Active Substance: EVOLOCUMAB
     Indication: HYPERCHOLESTEROLAEMIA
     Dosage: UNK
     Route: 065
  2. REPATHA [Suspect]
     Active Substance: EVOLOCUMAB
     Indication: BLOOD CHOLESTEROL ABNORMAL
     Dosage: 140 MG, Q2WK
     Route: 065
     Dates: start: 20150924

REACTIONS (18)
  - Rhinorrhoea [Not Recovered/Not Resolved]
  - Injection site swelling [Unknown]
  - Underdose [Unknown]
  - Injection site erythema [Unknown]
  - Peripheral swelling [Unknown]
  - Wrong technique in product usage process [Unknown]
  - Product quality issue [Unknown]
  - Memory impairment [Unknown]
  - Inappropriate schedule of product administration [Unknown]
  - Headache [Unknown]
  - Contusion [Unknown]
  - Injection site haemorrhage [Unknown]
  - Abdominal distension [Not Recovered/Not Resolved]
  - Injection site pain [Unknown]
  - Device malfunction [Unknown]
  - Anxiety [Unknown]
  - Injection site extravasation [Unknown]
  - Product dose omission [Unknown]

NARRATIVE: CASE EVENT DATE: 201808
